FAERS Safety Report 8498804-1 (Version None)
Quarter: 2012Q3

REPORT INFORMATION
  Report Type: 
  Country: None (occurrence: None)
  Receive Date: 20120709
  Receipt Date: 20120705
  Transmission Date: 20120928
  Serious: Yes (Other)
  Sender: FDA-Public Use
  Company Number: AU-AMGEN-AUSSP2012037654

PATIENT
  Age: 35 Year

DRUGS (5)
  1. NEULASTA [Suspect]
     Indication: NEUTROPENIA
  2. ETOPOSIDE [Concomitant]
     Indication: GERM CELL CANCER
  3. EMEND [Concomitant]
  4. CISPLATIN [Concomitant]
     Indication: GERM CELL CANCER
  5. BLEOMYCIN SULFATE [Concomitant]
     Indication: GERM CELL CANCER

REACTIONS (2)
  - PANCYTOPENIA [None]
  - NO THERAPEUTIC RESPONSE [None]
